FAERS Safety Report 9542911 (Version 1)
Quarter: 2013Q3

REPORT INFORMATION
  Report Type: Spontaneous
  Country: DE (occurrence: DE)
  Receive Date: 20130923
  Receipt Date: 20130923
  Transmission Date: 20140515
  Serious: Yes (Other)
  Sender: FDA-Public Use
  Company Number: DE-GILEAD-2013-0083772

PATIENT
  Age: 86 Year
  Sex: Female

DRUGS (10)
  1. RANOLAZINE [Suspect]
     Indication: DYSPNOEA EXERTIONAL
     Dosage: 375 MG, BID
     Route: 048
     Dates: start: 20130823, end: 20130916
  2. RANOLAZINE [Suspect]
     Indication: CORONARY ARTERY DISEASE
  3. ISCOVER [Concomitant]
     Dosage: 75 MG, QD
  4. BELOC-ZOK [Concomitant]
     Dosage: 95 MG, QD
  5. ALLOBETA [Concomitant]
     Dosage: 150 MG, QD
  6. SIMVASTATIN [Concomitant]
     Dosage: 10 MG, QD
  7. TORASEMIDE [Concomitant]
     Dosage: 5 MG, BID
  8. VALORON N                          /00628301/ [Concomitant]
     Dosage: 100/8 MG, UNK
  9. BROMAZEPAM [Concomitant]
     Dosage: 1.5 MG, QD
  10. KARVEA HCT [Concomitant]
     Dosage: 300/25 MG, QD

REACTIONS (1)
  - Urticaria [Recovered/Resolved]
